FAERS Safety Report 11630510 (Version 1)
Quarter: 2015Q4

REPORT INFORMATION
  Report Type: Spontaneous
  Country: US (occurrence: US)
  Receive Date: 20151014
  Receipt Date: 20151014
  Transmission Date: 20160304
  Serious: Yes (Hospitalization)
  Sender: FDA-Public Use
  Company Number: US-UNICHEM LABORATORIES LIMITED-UCM201508-000672

PATIENT
  Age: 83 Year
  Sex: Female
  Weight: 55.79 kg

DRUGS (6)
  1. WARFARIN [Concomitant]
     Active Substance: WARFARIN
  2. DIGOXIN. [Concomitant]
     Active Substance: DIGOXIN
  3. ATENOLOL. [Concomitant]
     Active Substance: ATENOLOL
  4. HYDROCHOLOTHIAZIDE 25 MG TABLET [Suspect]
     Active Substance: HYDROCHLOROTHIAZIDE
     Indication: HYPERTENSION
     Route: 048
     Dates: end: 20150808
  5. WARFARIN [Concomitant]
     Active Substance: WARFARIN
  6. ENALAPRIL [Concomitant]
     Active Substance: ENALAPRIL

REACTIONS (4)
  - Hyponatraemia [Recovered/Resolved]
  - Pollakiuria [Recovered/Resolved]
  - Pain [Not Recovered/Not Resolved]
  - Asthenia [Recovered/Resolved]

NARRATIVE: CASE EVENT DATE: 201505
